FAERS Safety Report 7183690-2 (Version None)
Quarter: 2010Q4

REPORT INFORMATION
  Report Type: 
  Country: None (occurrence: None)
  Receive Date: 20101220
  Receipt Date: 20101220
  Transmission Date: 20110411
  Serious: Yes (Hospitalization)
  Sender: FDA-Public Use
  Company Number: None

PATIENT
  Age: 33 Year
  Sex: Female
  Weight: 93.7 kg

DRUGS (6)
  1. TORADOL [Suspect]
     Indication: CHOLELITHIASIS
     Dosage: 10 MG QID PRN PO RECENT
     Route: 048
  2. TORADOL [Suspect]
     Indication: PAIN
     Dosage: 10 MG QID PRN PO RECENT
     Route: 048
  3. M.V.I. [Concomitant]
  4. PLEXENI [Concomitant]
  5. ZANTAC [Concomitant]
  6. VICODIN [Concomitant]

REACTIONS (4)
  - FAECES DISCOLOURED [None]
  - GASTRITIS [None]
  - NAUSEA [None]
  - VOMITING [None]
